FAERS Safety Report 4936931-3 (Version None)
Quarter: 2006Q1

REPORT INFORMATION
  Report Type: 
  Country: None (occurrence: None)
  Receive Date: 20060307
  Receipt Date: 20050414
  Transmission Date: 20060701
  Serious: Yes (Other)
  Sender: FDA-Public Use
  Company Number: US-MERCK-0504USA02545

PATIENT
  Age: 46 Year
  Sex: Female
  Weight: 84 kg

DRUGS (12)
  1. [THERAPY UNSPECIFIED] [Concomitant]
     Route: 065
  2. VIOXX [Suspect]
     Indication: ARTHRITIS
     Route: 048
     Dates: start: 20000101, end: 20020101
  3. VIOXX [Suspect]
     Indication: FIBROMYALGIA
     Route: 048
     Dates: start: 20000101, end: 20020101
  4. GLUCOPHAGE [Concomitant]
     Route: 065
  5. SINGULAIR [Concomitant]
     Route: 065
  6. GLYBURIDE [Concomitant]
     Route: 065
  7. ACCUPRIL [Concomitant]
     Route: 065
  8. ACTOS [Concomitant]
     Route: 065
  9. CIPRO [Concomitant]
     Route: 065
  10. ZESTRIL [Concomitant]
     Route: 065
  11. VIOXX [Suspect]
     Route: 048
     Dates: start: 20010101, end: 20020101
  12. VIOXX [Suspect]
     Route: 048
     Dates: start: 20010101, end: 20020101

REACTIONS (10)
  - ARTHRALGIA [None]
  - CHEST PAIN [None]
  - GASTRIC PERFORATION [None]
  - GASTROOESOPHAGEAL REFLUX DISEASE [None]
  - HEART RATE IRREGULAR [None]
  - HYPERTENSION [None]
  - LUNG DISORDER [None]
  - MYOCARDIAL INFARCTION [None]
  - PALPITATIONS [None]
  - SWELLING [None]
